FAERS Safety Report 7808062-6 (Version None)
Quarter: 2011Q4

REPORT INFORMATION
  Report Type: 
  Country: None (occurrence: None)
  Receive Date: 20111011
  Receipt Date: 20111006
  Transmission Date: 20120403
  Serious: Yes (Hospitalization, Disabling)
  Sender: FDA-Public Use
  Company Number: NL-ABBOTT-11P-114-0856046-00

PATIENT
  Sex: Male
  Weight: 97 kg

DRUGS (15)
  1. SIMVASTATIN [Concomitant]
     Indication: PRODUCT USED FOR UNKNOWN INDICATION
     Dosage: DAILY DOSE: 1 40MG PCH FC TABLET
     Route: 048
     Dates: start: 20090320
  2. FARO GRADUMET [Concomitant]
     Indication: PRODUCT USED FOR UNKNOWN INDICATION
     Dosage: SR 105 MG FE
     Route: 048
     Dates: start: 20090320
  3. HYDROCORTISON CF [Concomitant]
     Indication: PRODUCT USED FOR UNKNOWN INDICATION
     Route: 048
     Dates: start: 20090320
  4. INDOCOLLYRE EYEDROPS [Concomitant]
     Indication: PRODUCT USED FOR UNKNOWN INDICATION
     Dosage: 1MG/ML, 5ML
     Route: 047
     Dates: start: 20090320
  5. TOLBUTAMIDE SDZ [Concomitant]
     Indication: PRODUCT USED FOR UNKNOWN INDICATION
     Route: 048
     Dates: start: 20090320
  6. ATROPIN-SULPHATE RP EYE-DROPS [Concomitant]
     Indication: PRODUCT USED FOR UNKNOWN INDICATION
     Dosage: 1%, 10ML
     Route: 047
     Dates: start: 20090320
  7. TRAFLOXAL EYEDROPS [Concomitant]
     Indication: PRODUCT USED FOR UNKNOWN INDICATION
     Dosage: 3MG/ML, 5ML
     Route: 047
     Dates: start: 20090320
  8. ULTRACORTENOL OOGZALF [Concomitant]
     Indication: PRODUCT USED FOR UNKNOWN INDICATION
     Dosage: 5MG/G, 5G
     Route: 047
     Dates: start: 20090320
  9. TOBRADEX EYEDROP [Concomitant]
     Indication: PRODUCT USED FOR UNKNOWN INDICATION
     Route: 047
     Dates: start: 20090320
  10. METFORMIN HCL [Concomitant]
     Indication: PRODUCT USED FOR UNKNOWN INDICATION
     Route: 048
  11. LANSOPRAZOLE [Concomitant]
     Indication: PRODUCT USED FOR UNKNOWN INDICATION
     Dosage: EC CAPSULE
     Route: 048
     Dates: start: 20090320
  12. DOMPERIDON [Concomitant]
     Indication: PRODUCT USED FOR UNKNOWN INDICATION
     Dosage: SUPPOSITORY
     Route: 054
     Dates: start: 20090320
  13. HUMIRA [Suspect]
     Indication: ANKYLOSING SPONDYLITIS
     Route: 058
     Dates: start: 20100201
  14. METFORMIN HYDROCHLORIDE [Concomitant]
     Indication: PRODUCT USED FOR UNKNOWN INDICATION
     Dosage: PCH TABLET
     Route: 048
     Dates: start: 20090320
  15. TIMOLOL EYEDROPS [Concomitant]
     Indication: PRODUCT USED FOR UNKNOWN INDICATION
     Dosage: 5MG/ML, 5ML
     Route: 047
     Dates: start: 20090320

REACTIONS (5)
  - CEREBROVASCULAR ACCIDENT [None]
  - HEMIPARESIS [None]
  - APHASIA [None]
  - CEREBRAL INFARCTION [None]
  - DISABILITY [None]
